FAERS Safety Report 21989363 (Version 2)
Quarter: 2023Q1

REPORT INFORMATION
  Report Type: Spontaneous
  Country: AU (occurrence: AU)
  Receive Date: 20230214
  Receipt Date: 20230224
  Transmission Date: 20230417
  Serious: Yes (Hospitalization, Other)
  Sender: FDA-Public Use
  Company Number: AU-MYLANLABS-2022M1134386

PATIENT
  Age: 21 Year
  Sex: Female
  Weight: 105 kg

DRUGS (3)
  1. CLOZARIL [Suspect]
     Active Substance: CLOZAPINE
     Indication: Schizophrenia
     Dosage: 200 MILLIGRAM, HS
     Route: 048
     Dates: start: 20221103
  2. PALIPERIDONE PALMITATE [Concomitant]
     Active Substance: PALIPERIDONE PALMITATE
     Indication: Schizophrenia
     Dosage: 5 MILLIGRAM (EVERY 4 WEEKS)
     Route: 065
  3. METFORMIN HYDROCHLORIDE [Concomitant]
     Active Substance: METFORMIN HYDROCHLORIDE
     Dosage: 1 GRAM, HS
     Route: 048

REACTIONS (5)
  - Troponin [Recovered/Resolved]
  - Myocarditis [Unknown]
  - C-reactive protein increased [Recovering/Resolving]
  - Troponin increased [Recovered/Resolved]
  - Blood creatine phosphokinase increased [Not Recovered/Not Resolved]

NARRATIVE: CASE EVENT DATE: 20221121
